FAERS Safety Report 17807955 (Version 1)
Quarter: 2020Q2

REPORT INFORMATION
  Report Type: Report from Study
  Country: FR (occurrence: FR)
  Receive Date: 20200520
  Receipt Date: 20200520
  Transmission Date: 20200714
  Serious: Yes (Death, Other)
  Sender: FDA-Public Use
  Company Number: FR-BAYER-2020-090321

PATIENT
  Age: 47 Year
  Sex: Male

DRUGS (5)
  1. APROTININ (APROTININ) [Suspect]
     Active Substance: APROTININ
     Indication: AORTIC VALVE REPLACEMENT
     Dosage: 275 MILLILITRE EVERY 1 DAY(S) LOADING DOSE 1 MILLION KIU PUMP PRIMING DOSE 1 MILLION KIU TOTAL CONTI
     Route: 065
     Dates: start: 20190719, end: 20190719
  2. HEPARIN [Concomitant]
     Active Substance: HEPARIN SODIUM
     Indication: ANTICOAGULANT THERAPY
     Dosage: 28 KILO-INTERNATIONAL UNIT TOTAL DURING SURGERY
     Route: 065
     Dates: start: 20190719, end: 20190719
  3. FRESH FROZEN PLASMA [Concomitant]
     Active Substance: HUMAN PLASMA
     Indication: TRANSFUSION
     Dosage: 453 MILLILITRE TOTAL INTRAAND POST-OPERATIVELY (UP TO 48 HOURS)
     Dates: start: 20190719
  4. ASPIRIN. [Concomitant]
     Active Substance: ASPIRIN
     Indication: ANTIPLATELET THERAPY
     Dosage: UNK
     Route: 065
  5. RED BLOOD CELLS [Concomitant]
     Active Substance: HUMAN RED BLOOD CELL
     Indication: PACKED RED BLOOD CELL TRANSFUSION
     Dosage: 556 MILLILITRE TOTAL INTRAAND POST-OPERATIVELY (UP TO 48 HOURS)
     Dates: start: 20190719

REACTIONS (2)
  - Venous thrombosis [Recovering/Resolving]
  - Product use in unapproved indication [Unknown]

NARRATIVE: CASE EVENT DATE: 20190719
